FAERS Safety Report 7380907-6 (Version None)
Quarter: 2011Q1

REPORT INFORMATION
  Report Type: 
  Country: None (occurrence: None)
  Receive Date: 20110329
  Receipt Date: 20110324
  Transmission Date: 20110831
  Serious: Yes (Death, Hospitalization)
  Sender: FDA-Public Use
  Company Number: PHHY2010CA04976

PATIENT
  Sex: Male

DRUGS (11)
  1. EXJADE [Suspect]
     Dosage: 500 MG, DAILY
     Dates: start: 20080331
  2. TINZAPARIN [Concomitant]
     Dosage: 1.8 ML
     Route: 058
  3. FLUOXETINE HCL [Concomitant]
     Dosage: 40 MG, QD
  4. COUMADIN [Concomitant]
     Dosage: 7 MG, QD
  5. TESTOSTERONE [Concomitant]
     Dosage: 200 ML EVERY 02 WEEKS
     Route: 030
  6. FOLIC ACID [Concomitant]
     Dosage: 10 MG, QD
     Route: 048
  7. LORAZEPAM [Concomitant]
     Dosage: PRN
     Route: 048
  8. DILANDID [Concomitant]
     Dosage: 8-16 MG PRN
  9. PROZAC [Concomitant]
     Dosage: 40 MG
     Route: 048
  10. EXJADE [Suspect]
     Indication: HEREDITARY STOMATOCYTOSIS
     Dosage: 3500 MG, QD
     Route: 048
  11. KADIAN [Concomitant]
     Dosage: 200 MG, QD
     Route: 048

REACTIONS (10)
  - PERIPHERAL VASCULAR DISORDER [None]
  - VOMITING [None]
  - LOSS OF CONTROL OF LEGS [None]
  - DIARRHOEA [None]
  - INFLUENZA LIKE ILLNESS [None]
  - DYSPNOEA [None]
  - PAIN [None]
  - GAIT DISTURBANCE [None]
  - DEATH [None]
  - PULMONARY INFARCTION [None]
